FAERS Safety Report 16352162 (Version 1)
Quarter: 2019Q2

REPORT INFORMATION
  Report Type: Spontaneous
  Country: ES (occurrence: ES)
  Receive Date: 20190524
  Receipt Date: 20190524
  Transmission Date: 20190711
  Serious: Yes (Life-Threatening, Other)
  Sender: FDA-Public Use
  Company Number: ES-AUROBINDO-AUR-APL-2019-029060

PATIENT

DRUGS (1)
  1. CAPECITABINE 150 MG FILM COATED TABLET [Suspect]
     Active Substance: CAPECITABINE
     Indication: CHOLANGIOCARCINOMA
     Dosage: 1800 MILLIGRAM, TWO TIMES A DAY, FOR 14 DAYS WITH 7 DAYS BREAK
     Route: 048
     Dates: start: 20190211

REACTIONS (1)
  - Pulmonary embolism [Unknown]

NARRATIVE: CASE EVENT DATE: 20190415
